FAERS Safety Report 16342482 (Version 1)
Quarter: 2019Q2

REPORT INFORMATION
  Report Type: Spontaneous
  Country: US (occurrence: US)
  Receive Date: 20190520
  Receipt Date: 20190520
  Transmission Date: 20190711
  Serious: Yes (Hospitalization, Other)
  Sender: FDA-Public Use
  Company Number: None

PATIENT
  Age: 30 Year
  Sex: Female

DRUGS (1)
  1. NEUTROGENA MAKE-UP REMOVER CLSNG TOWEL 7S REF (NEUTROGENA MAKE-UP REMOVER) UNSPECIFIED [Suspect]
     Active Substance: COSMETICS
     Indication: PRODUCT USED FOR UNKNOWN INDICATION
     Dosage: ONE WIPE TWICE WEEKLY TOPICALLY
     Route: 061
     Dates: start: 20190504

REACTIONS (2)
  - Acne [None]
  - Pain of skin [None]

NARRATIVE: CASE EVENT DATE: 201905
